FAERS Safety Report 8267208-9 (Version None)
Quarter: 2012Q2

REPORT INFORMATION
  Report Type: 
  Country: None (occurrence: None)
  Receive Date: 20120409
  Receipt Date: 20120403
  Transmission Date: 20120825
  Serious: Yes (Hospitalization)
  Sender: FDA-Public Use
  Company Number: US-PFIZER INC-2012061334

PATIENT
  Age: 75 Year
  Sex: Male

DRUGS (6)
  1. AMLODIPINE [Concomitant]
     Dosage: UNK
     Route: 048
  2. DIAZEPAM [Concomitant]
     Dosage: UNK
     Route: 048
  3. CLONIDINE [Concomitant]
     Dosage: UNK
     Route: 048
  4. RANITIDINE [Concomitant]
     Dosage: UNK
     Route: 048
  5. POTASSIUM CHLORIDE [Concomitant]
     Dosage: UNK
     Route: 048
  6. SUTENT [Suspect]
     Indication: METASTATIC RENAL CELL CARCINOMA
     Dosage: 50 MG, 1X/DAY, 4 WEEKS ON AND 2 WEEKS OFF
     Route: 048
     Dates: start: 20120207, end: 20120220

REACTIONS (3)
  - MENTAL STATUS CHANGES [None]
  - LIVER FUNCTION TEST ABNORMAL [None]
  - CONFUSIONAL STATE [None]
